FAERS Safety Report 5793731-2 (Version None)
Quarter: 2008Q2

REPORT INFORMATION
  Report Type: 
  Country: None (occurrence: None)
  Receive Date: 20080601
  Receipt Date: 20080317
  Transmission Date: 20081010
  Serious: No
  Sender: FDA-Public Use
  Company Number: US200801005150

PATIENT
  Age: 50 Year
  Sex: Male
  Weight: 154.2 kg

DRUGS (12)
  1. BYETTA [Suspect]
     Indication: TYPE 2 DIABETES MELLITUS
     Dosage: 5 UG, 2/D, SUBCUTANEOUS ; 10 UG, 2/D, SUBCUTANEOUS
     Route: 058
     Dates: start: 20061106, end: 20061212
  2. BYETTA [Suspect]
     Indication: TYPE 2 DIABETES MELLITUS
     Dosage: 5 UG, 2/D, SUBCUTANEOUS ; 10 UG, 2/D, SUBCUTANEOUS
     Route: 058
     Dates: start: 20061212, end: 20071120
  3. LIPITOR [Concomitant]
  4. GLIPIZIDE [Concomitant]
  5. PLAVIX [Concomitant]
  6. MICARDIS [Concomitant]
  7. ULTRAM [Concomitant]
  8. PEPCID [Concomitant]
  9. CATAPRES-TS (CLONIDINE) [Concomitant]
  10. LOTREL /01289101/ (AMLODIPINE, BENAZEPRIL HYDROCHLORIDE) [Concomitant]
  11. LABETALOL HCL [Concomitant]
  12. ALLOPURINOL [Concomitant]

REACTIONS (3)
  - BLOOD CREATININE INCREASED [None]
  - WEIGHT DECREASED [None]
  - WEIGHT INCREASED [None]
